FAERS Safety Report 17410492 (Version 11)
Quarter: 2024Q3

REPORT INFORMATION
  Report Type: Report from Study
  Country: US (occurrence: US)
  Receive Date: 20200212
  Receipt Date: 20240926
  Transmission Date: 20241017
  Serious: Yes (Hospitalization, Other)
  Sender: TAKEDA
  Company Number: US-TAKEDA-2020TUS009147

PATIENT
  Age: 87 Year
  Sex: Male

DRUGS (5)
  1. BRIGATINIB [Suspect]
     Active Substance: BRIGATINIB
     Indication: Lung neoplasm malignant
     Dosage: 90 MILLIGRAM, QD
     Route: 048
  2. BRIGATINIB [Suspect]
     Active Substance: BRIGATINIB
     Dosage: 60 MILLIGRAM, QD
     Route: 048
  3. BRIGATINIB [Suspect]
     Active Substance: BRIGATINIB
     Dosage: UNK UNK, QD
     Route: 065
  4. BRIGATINIB [Suspect]
     Active Substance: BRIGATINIB
     Dosage: 60 MILLIGRAM, QD
     Route: 048
     Dates: end: 20240731
  5. GABAPENTIN [Concomitant]
     Active Substance: GABAPENTIN
     Indication: Burning sensation
     Dosage: UNK
     Route: 065

REACTIONS (15)
  - Chest pain [Unknown]
  - Large intestine perforation [Recovered/Resolved]
  - Fatigue [Unknown]
  - Hypoacusis [Not Recovered/Not Resolved]
  - Dysuria [Not Recovered/Not Resolved]
  - Renal disorder [Unknown]
  - Prostatomegaly [Not Recovered/Not Resolved]
  - Seasonal allergy [Unknown]
  - Physical deconditioning [Unknown]
  - Off label use [Unknown]
  - Burning sensation [Unknown]
  - Pain in extremity [Unknown]
  - Peripheral swelling [Recovered/Resolved]
  - Nasopharyngitis [Unknown]
  - Performance status decreased [Not Recovered/Not Resolved]

NARRATIVE: CASE EVENT DATE: 20240814
